FAERS Safety Report 4530012-9 (Version None)
Quarter: 2004Q4

REPORT INFORMATION
  Report Type: 
  Country: None (occurrence: None)
  Receive Date: 20041214
  Receipt Date: 20041203
  Transmission Date: 20050328
  Serious: Yes (Hospitalization, Other)
  Sender: FDA-Public Use
  Company Number: US-2004-036287

PATIENT
  Age: 44 Year
  Sex: Female

DRUGS (3)
  1. FLUDARA FOR INJECTION (FLUDARABINE PHOSPHATE) [Suspect]
     Indication: CHRONIC LYMPHOCYTIC LEUKAEMIA
     Dosage: 25MG/M2 X 3D Q28, INTRAVNEOUS
     Route: 042
     Dates: start: 20040901, end: 20041123
  2. RITUXIMAB (RITUXIMAB) [Suspect]
     Indication: CHRONIC LYMPHOCYTIC LEUKAEMIA
     Dosage: 375MG/M2 Q 28D, INTRAVENOUS
     Route: 042
     Dates: start: 20040901, end: 20041123
  3. GENASENSE [Suspect]
     Indication: CHRONIC LYMPHOCYTIC LEUKAEMIA
     Dosage: 3MG/KG/D X 7D Q28D, INTRAVENOUS
     Route: 042
     Dates: start: 20040827, end: 20041123

REACTIONS (5)
  - BLOOD PRESSURE SYSTOLIC DECREASED [None]
  - DIARRHOEA [None]
  - NAUSEA [None]
  - RENAL FAILURE ACUTE [None]
  - SEPSIS [None]
